FAERS Safety Report 16257883 (Version 4)
Quarter: 2021Q2

REPORT INFORMATION
  Report Type: Spontaneous
  Country: US (occurrence: US)
  Receive Date: 20190430
  Receipt Date: 20210423
  Transmission Date: 20210716
  Serious: No
  Sender: FDA-Public Use
  Company Number: US-PFIZER INC-2019177197

PATIENT
  Age: 72 Year
  Sex: Female

DRUGS (4)
  1. CELEBREX [Suspect]
     Active Substance: CELECOXIB
     Indication: ARTHRALGIA
     Dosage: 200 MG, 1X/DAY
     Dates: start: 2000
  2. INDAPAMIDE. [Concomitant]
     Active Substance: INDAPAMIDE
     Indication: HYPERTENSION
     Dosage: 1.25 MG, 1X/DAY
  3. INDAPAMIDE. [Concomitant]
     Active Substance: INDAPAMIDE
     Indication: STRESS
  4. CELEBREX [Suspect]
     Active Substance: CELECOXIB
     Indication: MUSCULOSKELETAL STIFFNESS

REACTIONS (3)
  - Pain [Unknown]
  - Fall [Unknown]
  - Memory impairment [Unknown]

NARRATIVE: CASE EVENT DATE: 20190421
